FAERS Safety Report 9492040 (Version 2)
Quarter: 2013Q3

REPORT INFORMATION
  Report Type: Report from Study
  Country: US (occurrence: US)
  Receive Date: 20130830
  Receipt Date: 20130930
  Transmission Date: 20140515
  Serious: Yes (Hospitalization)
  Sender: FDA-Public Use
  Company Number: PHEH2013US018330

PATIENT
  Age: 46 Year
  Sex: Female

DRUGS (4)
  1. TEGRETOL [Suspect]
     Indication: CONVULSION
     Dosage: 200 MG, BID
     Route: 048
  2. ADVAIR DISKUS [Concomitant]
     Indication: ASTHMA
     Dosage: UNK UKN, BID
     Route: 048
  3. IPRATROPIUM [Concomitant]
     Indication: ASTHMA
     Dosage: UNK UKN, QD
  4. VENTOLIN HFA [Concomitant]
     Indication: ASTHMA
     Dosage: QD / PRN
     Route: 048

REACTIONS (1)
  - Convulsion [Recovered/Resolved]
